FAERS Safety Report 19292062 (Version 1)
Quarter: 2021Q2

REPORT INFORMATION
  Report Type: Spontaneous
  Country: CA (occurrence: CA)
  Receive Date: 20210524
  Receipt Date: 20210524
  Transmission Date: 20210717
  Serious: Yes (Other)
  Sender: FDA-Public Use
  Company Number: CA-SAMSUNG BIOEPIS-SB-2021-12307

PATIENT
  Age: 44 Year
  Sex: Female

DRUGS (2)
  1. INFLIXIMAB [Suspect]
     Active Substance: INFLIXIMAB
     Indication: CROHN^S DISEASE
     Route: 042
  2. HYDROCORTISONE. [Concomitant]
     Active Substance: HYDROCORTISONE
     Indication: PRODUCT USED FOR UNKNOWN INDICATION
     Route: 065

REACTIONS (15)
  - Flatulence [Unknown]
  - Abdominal distension [Unknown]
  - Condition aggravated [Unknown]
  - Female genital tract fistula [Unknown]
  - Intentional product use issue [Unknown]
  - Arthralgia [Unknown]
  - Malaise [Unknown]
  - Off label use [Unknown]
  - Abdominal pain [Unknown]
  - Anxiety [Unknown]
  - Eructation [Unknown]
  - Peripheral swelling [Unknown]
  - Vomiting [Unknown]
  - Fatigue [Unknown]
  - Product dose omission issue [Unknown]
